FAERS Safety Report 7935666-2 (Version None)
Quarter: 2011Q4

REPORT INFORMATION
  Report Type: 
  Country: None (occurrence: None)
  Receive Date: 20111121
  Receipt Date: 20111108
  Transmission Date: 20120403
  Serious: Yes (Other)
  Sender: FDA-Public Use
  Company Number: AUR-APL-2011-05502

PATIENT
  Age: 61 Year
  Sex: Female
  Weight: 73.02 kg

DRUGS (14)
  1. ELAVIL [Concomitant]
  2. GLUCOSAMINE HCL (GLUCOSAMINE) [Concomitant]
  3. BORON (BORON) [Concomitant]
  4. CALCIUM CARBONATE [Concomitant]
  5. VENLAFAXINE [Suspect]
     Indication: INSOMNIA
     Dosage: (150 MG, 1 D) , ORAL
     Route: 048
     Dates: start: 20110801, end: 20110101
  6. EFFEXOR [Suspect]
     Indication: DEPRESSION
     Dosage: (150 MG, 1 D) ,ORAL (75 MG, 1 D), ORAL ; (150 MG, 1 D) ,ORAL
     Route: 048
     Dates: start: 20110101, end: 20110101
  7. EFFEXOR [Suspect]
     Indication: INSOMNIA
     Dosage: (150 MG, 1 D) ,ORAL (75 MG, 1 D), ORAL ; (150 MG, 1 D) ,ORAL
     Route: 048
     Dates: start: 20110101, end: 20110101
  8. EFFEXOR [Suspect]
     Indication: DEPRESSION
     Dosage: (150 MG, 1 D) ,ORAL (75 MG, 1 D), ORAL ; (150 MG, 1 D) ,ORAL
     Route: 048
     Dates: start: 20040101, end: 20110801
  9. EFFEXOR [Suspect]
     Indication: INSOMNIA
     Dosage: (150 MG, 1 D) ,ORAL (75 MG, 1 D), ORAL ; (150 MG, 1 D) ,ORAL
     Route: 048
     Dates: start: 20040101, end: 20110801
  10. EFFEXOR [Suspect]
     Indication: DEPRESSION
     Dosage: (150 MG, 1 D) ,ORAL (75 MG, 1 D), ORAL ; (150 MG, 1 D) ,ORAL
     Route: 048
     Dates: start: 20110101, end: 20110101
  11. EFFEXOR [Suspect]
     Indication: INSOMNIA
     Dosage: (150 MG, 1 D) ,ORAL (75 MG, 1 D), ORAL ; (150 MG, 1 D) ,ORAL
     Route: 048
     Dates: start: 20110101, end: 20110101
  12. PROGESTERONE [Concomitant]
  13. MULTIVITAMIN [Concomitant]
  14. VITAMIN D [Concomitant]

REACTIONS (14)
  - HYPOAESTHESIA [None]
  - DISTURBANCE IN ATTENTION [None]
  - COORDINATION ABNORMAL [None]
  - BALANCE DISORDER [None]
  - NERVOUSNESS [None]
  - EYE PAIN [None]
  - DYSGRAPHIA [None]
  - SPEECH DISORDER [None]
  - PRODUCT SUBSTITUTION ISSUE [None]
  - MENINGIOMA [None]
  - NERVOUS SYSTEM DISORDER [None]
  - METASTASES TO BONE [None]
  - TREMOR [None]
  - NEURILEMMOMA [None]
